FAERS Safety Report 16010652 (Version 1)
Quarter: 2019Q1

REPORT INFORMATION
  Report Type: Spontaneous
  Country: US (occurrence: US)
  Receive Date: 20190227
  Receipt Date: 20190227
  Transmission Date: 20190418
  Serious: No
  Sender: FDA-Public Use
  Company Number: US-AMGEN-USASP2019029788

PATIENT
  Age: 53 Year
  Sex: Female
  Weight: 19 kg

DRUGS (1)
  1. ENBREL [Suspect]
     Active Substance: ETANERCEPT
     Indication: RHEUMATOID ARTHRITIS
     Dosage: UNK UNK, QWK
     Route: 065
     Dates: start: 201804

REACTIONS (3)
  - Wrong technique in product usage process [Unknown]
  - Confusional state [Unknown]
  - Injection site pain [Unknown]

NARRATIVE: CASE EVENT DATE: 20190218
